FAERS Safety Report 5011520-3 (Version None)
Quarter: 2006Q2

REPORT INFORMATION
  Report Type: 
  Country: None (occurrence: None)
  Receive Date: 20060404
  Receipt Date: 20060123
  Transmission Date: 20061013
  Serious: No
  Sender: FDA-Public Use
  Company Number: US200601003954

PATIENT
  Age: 47 Year
  Sex: Female

DRUGS (6)
  1. CYMBALTA [Suspect]
     Indication: DEPRESSION
     Dosage: 30 MG, ORAL
     Route: 048
     Dates: start: 20060118
  2. SYNTHROID [Concomitant]
  3. OVCON-35 (ETHINYLESTRADIOL, NORESTHISTERONE) [Concomitant]
  4. CELEBREX /UNK/ (CELECOXIB) [Concomitant]
  5. TRAZODONE HCL [Concomitant]
  6. WELLBUTRIN [Concomitant]

REACTIONS (2)
  - DEPRESSION [None]
  - FATIGUE [None]
